FAERS Safety Report 6356893-4 (Version None)
Quarter: 2009Q3

REPORT INFORMATION
  Report Type: 
  Country: None (occurrence: None)
  Receive Date: 20090910
  Receipt Date: 20090910
  Transmission Date: 20100115
  Serious: No
  Sender: FDA-Public Use
  Company Number: None

PATIENT
  Age: 53 Year
  Sex: Male
  Weight: 81.6475 kg

DRUGS (2)
  1. TOPROL-XL [Suspect]
     Indication: MYOCARDIAL INFARCTION
     Dosage: 1 PILL TWICE DAILY PO
     Route: 048
     Dates: start: 20060815, end: 20070822
  2. LISINOPRIL [Suspect]
     Indication: MYOCARDIAL INFARCTION
     Dosage: 1 PILL TWICE DAILY PO
     Route: 048
     Dates: start: 20060731, end: 20070731

REACTIONS (2)
  - COUGH [None]
  - RASH [None]
